FAERS Safety Report 15608094 (Version 3)
Quarter: 2019Q2

REPORT INFORMATION
  Report Type: Spontaneous
  Country: US (occurrence: US)
  Receive Date: 20181112
  Receipt Date: 20190516
  Transmission Date: 20190711
  Serious: Yes (Death, Other)
  Sender: FDA-Public Use
  Company Number: US-PFIZER INC-2018463828

PATIENT
  Age: 76 Year
  Sex: Male

DRUGS (1)
  1. LYRICA [Suspect]
     Active Substance: PREGABALIN
     Indication: LEG AMPUTATION
     Dosage: UNK

REACTIONS (4)
  - Death [Fatal]
  - Product use in unapproved indication [Unknown]
  - Glaucoma [Unknown]
  - Blindness [Unknown]
